FAERS Safety Report 17150386 (Version 2)
Quarter: 2019Q4

REPORT INFORMATION
  Report Type: Spontaneous
  Country: JP (occurrence: JP)
  Receive Date: 20191213
  Receipt Date: 20191226
  Transmission Date: 20200122
  Serious: Yes (Hospitalization, Other)
  Sender: FDA-Public Use
  Company Number: JP-GLAXOSMITHKLINE-JP2019JPN224071

PATIENT
  Age: 23 Year
  Sex: Male

DRUGS (4)
  1. CLONAZEPAM. [Suspect]
     Active Substance: CLONAZEPAM
     Indication: PROPHYLAXIS
     Dosage: UNK
     Route: 048
  2. VALPROATE SODIUM. [Suspect]
     Active Substance: VALPROATE SODIUM
     Indication: PROPHYLAXIS
     Dosage: UNK
     Route: 048
  3. LAMICTAL [Suspect]
     Active Substance: LAMOTRIGINE
     Indication: PROPHYLAXIS
     Dosage: UNK
     Route: 048
  4. GABAPENTIN. [Suspect]
     Active Substance: GABAPENTIN
     Indication: PROPHYLAXIS
     Dosage: UNK
     Route: 048

REACTIONS (7)
  - Acute hepatic failure [Recovering/Resolving]
  - Hepatic function abnormal [Recovering/Resolving]
  - Product use in unapproved indication [Unknown]
  - Tuberculous pleurisy [Unknown]
  - Pneumonia aspiration [Unknown]
  - Altered state of consciousness [Unknown]
  - Pleural effusion [Unknown]
